FAERS Safety Report 12325957 (Version 3)
Quarter: 2017Q3

REPORT INFORMATION
  Report Type: Spontaneous
  Country: US (occurrence: US)
  Receive Date: 20160503
  Receipt Date: 20170905
  Transmission Date: 20171127
  Serious: No
  Sender: FDA-Public Use
  Company Number: US-AUROBINDO-AUR-APU-2016-03501

PATIENT
  Sex: Male
  Weight: 58.96 kg

DRUGS (1)
  1. OXYCODONE+ACETAMINOPHEN 10MG/325MG [Suspect]
     Active Substance: ACETAMINOPHEN\OXYCODONE HYDROCHLORIDE
     Indication: PAIN
     Dosage: MAX OF 5/DAY AS NEED
     Route: 065

REACTIONS (3)
  - Drug ineffective [Recovering/Resolving]
  - Dysgeusia [Recovering/Resolving]
  - Micturition urgency [Recovering/Resolving]
